FAERS Safety Report 5167189-0 (Version None)
Quarter: 2006Q4

REPORT INFORMATION
  Report Type: 
  Country: None (occurrence: None)
  Receive Date: 20061130
  Receipt Date: 20061116
  Transmission Date: 20070319
  Serious: Yes (Hospitalization)
  Sender: FDA-Public Use
  Company Number: 02100-JPN-06-0542

PATIENT
  Age: 88 Year
  Sex: Female

DRUGS (4)
  1. CILOSTAZOL [Suspect]
     Indication: ANGINA PECTORIS
     Dosage: 200 MG
     Route: 048
     Dates: start: 20060906, end: 20060913
  2. TICLOPIDINE HYDROCHLORIDE [Concomitant]
  3. VALSARTAN [Concomitant]
  4. ATORVASTATIN CALCIUM [Concomitant]

REACTIONS (2)
  - DERMATITIS EXFOLIATIVE [None]
  - PERCUTANEOUS CORONARY INTERVENTION [None]
